FAERS Safety Report 13093070 (Version 2)
Quarter: 2017Q1

REPORT INFORMATION
  Report Type: Report from Study
  Country: FR (occurrence: FR)
  Receive Date: 20170106
  Receipt Date: 20170125
  Transmission Date: 20170428
  Serious: Yes (Life-Threatening, Hospitalization, Other)
  Sender: FDA-Public Use
  Company Number: FR-SA-2016SA101424

PATIENT
  Age: 10 Year
  Sex: Male
  Weight: 37.4 kg

DRUGS (8)
  1. CAMPATH [Suspect]
     Active Substance: ALEMTUZUMAB
     Indication: HISTIOCYTIC SARCOMA
     Route: 058
     Dates: start: 20161213, end: 20161213
  2. ZOVIRAX [Concomitant]
     Active Substance: ACYCLOVIR
     Dates: start: 20160404
  3. CAMPATH [Suspect]
     Active Substance: ALEMTUZUMAB
     Indication: HISTIOCYTIC SARCOMA
     Route: 065
     Dates: start: 20160404, end: 20160413
  4. CAMPATH [Suspect]
     Active Substance: ALEMTUZUMAB
     Indication: HISTIOCYTIC SARCOMA
     Route: 058
     Dates: start: 201603, end: 201603
  5. CAMPATH [Suspect]
     Active Substance: ALEMTUZUMAB
     Indication: HISTIOCYTIC SARCOMA
     Route: 041
     Dates: start: 201607, end: 201609
  6. CAMPATH [Suspect]
     Active Substance: ALEMTUZUMAB
     Indication: HISTIOCYTIC SARCOMA
     Route: 065
     Dates: start: 20160630
  7. CAMPATH [Suspect]
     Active Substance: ALEMTUZUMAB
     Indication: HISTIOCYTIC SARCOMA
     Route: 041
     Dates: start: 201609, end: 201609
  8. ORACILLINE [Concomitant]
     Active Substance: PENICILLIN V
     Dates: start: 20160404

REACTIONS (7)
  - Therapeutic response decreased [Unknown]
  - Haematuria [Not Recovered/Not Resolved]
  - Neoplasm progression [Not Recovered/Not Resolved]
  - Adenovirus infection [Recovered/Resolved]
  - Asthenia [Recovered/Resolved]
  - Pyrexia [Recovered/Resolved]
  - Cystitis haemorrhagic [Not Recovered/Not Resolved]

NARRATIVE: CASE EVENT DATE: 20160506
